FAERS Safety Report 14309976 (Version 1)
Quarter: 2017Q4

REPORT INFORMATION
  Report Type: Spontaneous
  Country: IT (occurrence: IT)
  Receive Date: 20171220
  Receipt Date: 20171220
  Transmission Date: 20180321
  Serious: Yes (Hospitalization)
  Sender: FDA-Public Use
  Company Number: IT-BAYER-2017-241211

PATIENT
  Age: 84 Year
  Sex: Female

DRUGS (8)
  1. TRIATEC HCT [Concomitant]
     Active Substance: HYDROCHLOROTHIAZIDE\RAMIPRIL
     Dosage: UNK 2,5 MG+ 12,5 MG
  2. ALLOPURINOL. [Concomitant]
     Active Substance: ALLOPURINOL
     Dosage: 100 MG, UNK
  3. GARDENALE [Concomitant]
     Active Substance: PHENOBARBITAL
     Dosage: UNK
  4. AMIODARONE [Concomitant]
     Active Substance: AMIODARONE
     Dosage: UNK
  5. CARDIOASPIRIN 100 MG [Suspect]
     Active Substance: ASPIRIN
     Indication: ISCHAEMIC HEART DISEASE PROPHYLAXIS
     Dosage: 100 MG, UNK
     Route: 048
     Dates: start: 20170101, end: 20170405
  6. SIVASTIN [Concomitant]
     Active Substance: SIMVASTATIN
     Dosage: 40 MG, UNK
  7. BENZOCAINE. [Concomitant]
     Active Substance: BENZOCAINE
     Dosage: UNK
  8. PANTOPRAZOLE [Concomitant]
     Active Substance: PANTOPRAZOLE
     Dosage: 40 MG, UNK

REACTIONS (3)
  - Myocardial ischaemia [Recovering/Resolving]
  - Haemorrhagic anaemia [Recovering/Resolving]
  - Melaena [Recovering/Resolving]

NARRATIVE: CASE EVENT DATE: 20170401
